FAERS Safety Report 21384953 (Version 1)
Quarter: 2022Q3

REPORT INFORMATION
  Report Type: Spontaneous
  Country: US (occurrence: US)
  Receive Date: 20220928
  Receipt Date: 20220928
  Transmission Date: 20221027
  Serious: No
  Sender: FDA-Public Use
  Company Number: US-AVEO ONCOLOGY-2022-AVEO-US000373

PATIENT

DRUGS (16)
  1. FOTIVDA [Suspect]
     Active Substance: TIVOZANIB HYDROCHLORIDE
     Indication: Renal cell carcinoma
     Dosage: 0.89 MG, DAILY FOR 21 DAYS WITH 7 DAYS OFF (28-DAY CYCLE)
     Dates: start: 20220821
  2. ASPIRIN [Concomitant]
     Active Substance: ASPIRIN
  3. CETIRIZINE [Concomitant]
     Active Substance: CETIRIZINE HYDROCHLORIDE
  4. COREG [Concomitant]
     Active Substance: CARVEDILOL
  5. CYMBALTA [Concomitant]
     Active Substance: DULOXETINE HYDROCHLORIDE
  6. FENOFIBRATE [Concomitant]
     Active Substance: FENOFIBRATE
  7. FUROSEMIDE [Concomitant]
     Active Substance: FUROSEMIDE
  8. GLUCAGON [Concomitant]
     Active Substance: GLUCAGON
  9. LACTOBACILLUS ACIDOPHILUS [Concomitant]
     Active Substance: LACTOBACILLUS ACIDOPHILUS
  10. LIDOCAINE [Concomitant]
     Active Substance: LIDOCAINE
  11. LYRICA [Concomitant]
     Active Substance: PREGABALIN
  12. NARCAN [Concomitant]
     Active Substance: NALOXONE HYDROCHLORIDE
  13. NORCO [Concomitant]
     Active Substance: ACETAMINOPHEN\HYDROCODONE BITARTRATE
  14. PROCHLORPERAZINE [Concomitant]
     Active Substance: PROCHLORPERAZINE
  15. SYNTHROID [Concomitant]
     Active Substance: LEVOTHYROXINE SODIUM
  16. ZOFRAN [Concomitant]
     Active Substance: ONDANSETRON HYDROCHLORIDE

REACTIONS (3)
  - Fall [Unknown]
  - Muscular weakness [Unknown]
  - Gait inability [Unknown]

NARRATIVE: CASE EVENT DATE: 20220826
